FAERS Safety Report 23052229 (Version 1)
Quarter: 2023Q4

REPORT INFORMATION
  Report Type: Spontaneous
  Country: US (occurrence: US)
  Receive Date: 20231010
  Receipt Date: 20231010
  Transmission Date: 20240109
  Serious: Yes (Death, Other)
  Sender: FDA-Public Use
  Company Number: US-BAYER-2023A141649

PATIENT
  Age: 17 Year
  Sex: Female

DRUGS (10)
  1. ILOPROST [Suspect]
     Active Substance: ILOPROST
     Indication: Pulmonary arterial hypertension
     Dosage: UNK
     Route: 055
  2. SELEXIPAG [Concomitant]
     Active Substance: SELEXIPAG
     Indication: Pulmonary arterial hypertension
     Dosage: STARTED AT 200 G TWICE DAILY AND INCREASED BY 200 G WEEKLY
     Route: 048
  3. SELEXIPAG [Concomitant]
     Active Substance: SELEXIPAG
     Indication: Pulmonary arterial hypertension
     Dosage: TITRATED UP TO 1600 G TWICE DAILY
     Route: 048
  4. SELEXIPAG [Concomitant]
     Active Substance: SELEXIPAG
     Indication: Pulmonary arterial hypertension
     Dosage: INCREASED TO 1800 G TWICE DAILY
     Route: 048
  5. FUROSEMIDE [Concomitant]
     Active Substance: FUROSEMIDE
  6. BOSENTAN [Concomitant]
     Active Substance: BOSENTAN
  7. ENOXAPARIN [Concomitant]
     Active Substance: ENOXAPARIN
     Route: 058
  8. DOBUTAMINE [Concomitant]
     Active Substance: DOBUTAMINE HYDROCHLORIDE
     Dosage: TITRATED OFF WITHIN 24 HOURS
  9. VASOPRESSIN [Concomitant]
     Active Substance: VASOPRESSIN
     Dosage: TITRATED OFF WITHIN 24 HOURS
  10. TADALAFIL [Concomitant]
     Active Substance: TADALAFIL

REACTIONS (4)
  - Cardiac arrest [Fatal]
  - Off label use [Unknown]
  - Contraindicated product administered [Unknown]
  - Maternal exposure during pregnancy [Unknown]
